FAERS Safety Report 13412903 (Version 1)
Quarter: 2017Q2

REPORT INFORMATION
  Report Type: Spontaneous
  Country: IT (occurrence: IT)
  Receive Date: 20170407
  Receipt Date: 20170407
  Transmission Date: 20170830
  Serious: Yes (Other)
  Sender: FDA-Public Use
  Company Number: IT-AUROBINDO-AUR-APL-2017-31905

PATIENT
  Age: 68 Year
  Sex: Male
  Weight: 85 kg

DRUGS (3)
  1. HARVONI [Suspect]
     Active Substance: LEDIPASVIR\SOFOSBUVIR
     Indication: CHRONIC HEPATITIS C
     Dosage: 1 DF, DAILY
     Route: 048
     Dates: start: 20160509
  2. RIBAVIRIN. [Suspect]
     Active Substance: RIBAVIRIN
     Dosage: 1000 MG, DAILY
     Route: 048
     Dates: start: 201606
  3. RIBAVIRIN. [Suspect]
     Active Substance: RIBAVIRIN
     Indication: CHRONIC HEPATITIS C
     Dosage: 1200 MG, DAILY
     Route: 048
     Dates: start: 20160509, end: 20160606

REACTIONS (1)
  - Virologic failure [Not Recovered/Not Resolved]

NARRATIVE: CASE EVENT DATE: 20161214
